FAERS Safety Report 6651756-9 (Version None)
Quarter: 2010Q1

REPORT INFORMATION
  Report Type: 
  Country: None (occurrence: None)
  Receive Date: 20100325
  Receipt Date: 20100316
  Transmission Date: 20100710
  Serious: Yes (Hospitalization)
  Sender: FDA-Public Use
  Company Number: CA-BAXTER-2009BH016264

PATIENT
  Age: 50 Year
  Sex: Male
  Weight: 87 kg

DRUGS (26)
  1. TISSEEL VH KIT [Suspect]
     Indication: TISSUE SEALING
     Route: 029
     Dates: start: 20091005, end: 20091005
  2. SCOPOLAMINE [Concomitant]
     Route: 062
     Dates: start: 20091008, end: 20091020
  3. ENOXAPARIN SODIUM [Concomitant]
     Dates: start: 20091015, end: 20091022
  4. COLACE [Concomitant]
     Dates: start: 20091010, end: 20091022
  5. DECADRON [Concomitant]
     Dates: start: 20091005, end: 20091019
  6. TEARS NATURALE [Concomitant]
     Dates: start: 20091006, end: 20091021
  7. PANTOPRAZOLE [Concomitant]
     Dates: start: 20091007, end: 20091022
  8. HYDRALAZINE HCL [Concomitant]
     Dates: start: 20091005, end: 20091021
  9. MAGNOLAX [Concomitant]
  10. DULCOLAX [Concomitant]
  11. ONDANSETRON [Concomitant]
     Dates: start: 20091005, end: 20091021
  12. TYLENOL-500 [Concomitant]
     Dates: start: 20090801, end: 20091018
  13. ANCEF [Concomitant]
     Dates: start: 20091005, end: 20091014
  14. CIPROFLOXACIN [Concomitant]
     Indication: PROPHYLAXIS
     Route: 042
     Dates: start: 20091013, end: 20091022
  15. HEPARIN [Concomitant]
     Route: 058
     Dates: start: 20091010, end: 20091015
  16. FLAGYL [Concomitant]
     Indication: PROPHYLAXIS
     Route: 042
     Dates: start: 20091013, end: 20091015
  17. ANCEF [Concomitant]
     Route: 042
     Dates: start: 20091005, end: 20091007
  18. VITAMIN B-12 [Concomitant]
     Route: 048
     Dates: start: 20090701
  19. ZANTAC [Concomitant]
     Indication: GASTROOESOPHAGEAL REFLUX DISEASE
     Route: 042
     Dates: start: 20091005, end: 20091009
  20. GRAVOL TAB [Concomitant]
     Indication: PROPHYLAXIS
     Dates: start: 20091006, end: 20091019
  21. POTASSIUM CHLORIDE [Concomitant]
     Dates: start: 20091006, end: 20091006
  22. MAXALT-MLT [Concomitant]
     Dates: start: 20090201
  23. PERCOCET [Concomitant]
     Dates: start: 20091011, end: 20091022
  24. SENNOCOL [Concomitant]
     Dates: start: 20091009, end: 20091018
  25. REFEX [Concomitant]
     Dates: start: 20091010
  26. MORPHINE [Concomitant]
     Dates: start: 20091006, end: 20091021

REACTIONS (1)
  - CEREBROSPINAL FISTULA [None]
